FAERS Safety Report 17054971 (Version 1)
Quarter: 2019Q4

REPORT INFORMATION
  Report Type: Other
  Country: LB (occurrence: LB)
  Receive Date: 20191120
  Receipt Date: 20191120
  Transmission Date: 20200122
  Serious: Yes (Other)
  Sender: FDA-Public Use
  Company Number: LB-VITRUVIAS THERAPEUTICS-2077052

PATIENT
  Age: 52 Year
  Sex: Female

DRUGS (1)
  1. POTASSIUM CHLORIDE. [Suspect]
     Active Substance: POTASSIUM CHLORIDE
     Route: 042

REACTIONS (1)
  - Infusion site extravasation [Recovered/Resolved]
